FAERS Safety Report 7459381-7 (Version None)
Quarter: 2011Q2

REPORT INFORMATION
  Report Type: 
  Country: None (occurrence: None)
  Receive Date: 20110426
  Receipt Date: 20110411
  Transmission Date: 20111010
  Serious: Yes (Death, Hospitalization)
  Sender: FDA-Public Use
  Company Number: 030896

PATIENT
  Sex: Female

DRUGS (10)
  1. TORSEMIDE [Suspect]
     Dosage: SPECIFIED) (10 MG ORAL)
     Route: 048
     Dates: end: 20100810
  2. PANTOZOL /01263202/ [Concomitant]
  3. FERRO-SANOL B [Concomitant]
  4. ESCITALOPRAM OXALATE [Suspect]
     Indication: DEPRESSION
     Dosage: (5 MG ORAL), (10 MG ORAL), (20 MG ORAL) DEPRESSION
     Route: 048
     Dates: start: 20100720, end: 20100720
  5. ESCITALOPRAM OXALATE [Suspect]
     Indication: DEPRESSION
     Dosage: (5 MG ORAL), (10 MG ORAL), (20 MG ORAL) DEPRESSION
     Route: 048
     Dates: start: 20100731, end: 20100803
  6. ESCITALOPRAM OXALATE [Suspect]
     Indication: DEPRESSION
     Dosage: (5 MG ORAL), (10 MG ORAL), (20 MG ORAL) DEPRESSION
     Route: 048
     Dates: start: 20100804, end: 20100810
  7. KEPPRA [Suspect]
     Indication: DEPRESSION
     Dosage: (1000 MG ORAL)
     Route: 048
     Dates: start: 20100805
  8. BISOPROLOL FUMARATE [Suspect]
     Dosage: (5 MG ORAL)
     Route: 048
     Dates: end: 20100810
  9. ASPIRIN [Concomitant]
  10. MCP /00041901/ [Concomitant]

REACTIONS (16)
  - BLOOD CHOLESTEROL INCREASED [None]
  - COGNITIVE DISORDER [None]
  - HYPOTENSION [None]
  - VERTIGO [None]
  - BLOOD TRIGLYCERIDES INCREASED [None]
  - DEMENTIA [None]
  - LACERATION [None]
  - CEREBRAL HAEMORRHAGE [None]
  - BLOOD POTASSIUM DECREASED [None]
  - HYPOTONIA [None]
  - DIZZINESS [None]
  - BALANCE DISORDER [None]
  - URINARY TRACT INFECTION [None]
  - DEPRESSED LEVEL OF CONSCIOUSNESS [None]
  - BLOOD GLUCOSE INCREASED [None]
  - FALL [None]
